FAERS Safety Report 9326261 (Version 2)
Quarter: 2013Q2

REPORT INFORMATION
  Report Type: Spontaneous
  Country: ES (occurrence: ES)
  Receive Date: 20130604
  Receipt Date: 20130611
  Transmission Date: 20140414
  Serious: Yes (Other)
  Sender: FDA-Public Use
  Company Number: ES-PFIZER INC-2013166323

PATIENT
  Age: 56 Year
  Sex: Male

DRUGS (2)
  1. CHAMPIX [Suspect]
     Dosage: UNK
     Dates: start: 20130422, end: 20130526
  2. CRESTOR [Concomitant]
     Indication: BLOOD CHOLESTEROL
     Dosage: 10 MG, UNK

REACTIONS (4)
  - Hypertension [Recovered/Resolved]
  - Fluid retention [Unknown]
  - Headache [Recovering/Resolving]
  - Abdominal discomfort [Unknown]
